FAERS Safety Report 11088143 (Version 3)
Quarter: 2015Q4

REPORT INFORMATION
  Report Type: Spontaneous
  Country: IT (occurrence: IT)
  Receive Date: 20150504
  Receipt Date: 20151007
  Transmission Date: 20160304
  Serious: Yes (Hospitalization)
  Sender: FDA-Public Use
  Company Number: IT-PFIZER INC-2015147343

PATIENT
  Age: 45 Year
  Sex: Male

DRUGS (3)
  1. XANAX [Suspect]
     Active Substance: ALPRAZOLAM
     Dosage: 2.5 MG, TOTAL, SINGLE
     Route: 048
     Dates: start: 20150310, end: 20150310
  2. XANAX [Suspect]
     Active Substance: ALPRAZOLAM
     Dosage: 40 ML, TOTAL, SINGLE
     Route: 048
     Dates: start: 20150310, end: 20150310
  3. STILNOX [Suspect]
     Active Substance: ZOLPIDEM TARTRATE
     Dosage: 50 MG, TOTAL, SINGLE
     Dates: start: 20150310, end: 20150310

REACTIONS (2)
  - Drug abuse [Recovered/Resolved]
  - Sopor [Recovered/Resolved]

NARRATIVE: CASE EVENT DATE: 20150310
